FAERS Safety Report 25278871 (Version 1)
Quarter: 2025Q2

REPORT INFORMATION
  Report Type: Spontaneous
  Country: CA (occurrence: CA)
  Receive Date: 20250507
  Receipt Date: 20250507
  Transmission Date: 20250716
  Serious: Yes (Other)
  Sender: PFIZER
  Company Number: CA-PFIZER INC-202500095459

PATIENT
  Age: 54 Year
  Sex: Male

DRUGS (3)
  1. HEPARIN SODIUM [Suspect]
     Active Substance: HEPARIN SODIUM
     Route: 042
  2. ASPIRIN [Suspect]
     Active Substance: ASPIRIN
     Dosage: 80 MG, 1X/DAY
     Route: 048
  3. BRILINTA [Suspect]
     Active Substance: TICAGRELOR
     Dosage: 90 MG, 2X/DAY
     Route: 048

REACTIONS (5)
  - Anaemia [Recovered/Resolved]
  - Haemolysis [Recovered/Resolved]
  - Haemorrhage [Recovered/Resolved]
  - Inflammation [Recovered/Resolved]
  - Thrombocytopenia [Recovered/Resolved]
